FAERS Safety Report 13561296 (Version 2)
Quarter: 2017Q2

REPORT INFORMATION
  Report Type: Spontaneous
  Country: US (occurrence: US)
  Receive Date: 20170518
  Receipt Date: 20170615
  Transmission Date: 20170830
  Serious: No
  Sender: FDA-Public Use
  Company Number: US-SHIRE-US201710525

PATIENT
  Age: 68 Year
  Sex: Female
  Weight: 68.27 kg

DRUGS (5)
  1. SYNTHROID [Concomitant]
     Active Substance: LEVOTHYROXINE SODIUM
     Indication: THYROID DISORDER
     Dosage: 0.88 ?G, 1X/DAY:QD
     Route: 048
  2. MOBIC [Concomitant]
     Active Substance: MELOXICAM
     Indication: ARTHRALGIA
     Dosage: 7.5 MG TABLET OR HALF A 15 MG TABLET, 1X/DAY:QD
     Route: 048
     Dates: start: 2005
  3. CICLOPIROX. [Concomitant]
     Active Substance: CICLOPIROX
     Indication: ONYCHOMYCOSIS
     Dosage: UNK, 1X/DAY:QD
     Route: 061
  4. MULTIVITAMIN                       /00097801/ [Concomitant]
     Active Substance: VITAMINS
     Indication: NUTRITIONAL SUPPLEMENTATION
     Dosage: UNK, 1X/DAY:QD
     Route: 048
  5. XIIDRA [Suspect]
     Active Substance: LIFITEGRAST
     Indication: DRY EYE
     Dosage: 1 DROP IN BOTH EYES, 2X/DAY:BID
     Route: 047
     Dates: start: 201704

REACTIONS (5)
  - Eye injury [Recovered/Resolved]
  - Adverse event [Unknown]
  - Product quality issue [Unknown]
  - Eye pain [Recovered/Resolved]
  - Drug dose omission [Unknown]

NARRATIVE: CASE EVENT DATE: 201704
